FAERS Safety Report 18798927 (Version 1)
Quarter: 2021Q1

REPORT INFORMATION
  Report Type: Spontaneous
  Country: US (occurrence: US)
  Receive Date: 20210127
  Receipt Date: 20210127
  Transmission Date: 20210419
  Serious: Yes (Hospitalization)
  Sender: FDA-Public Use
  Company Number: None

PATIENT
  Age: 61 Year
  Sex: Male

DRUGS (9)
  1. ESBRIET [Suspect]
     Active Substance: PIRFENIDONE
     Indication: IDIOPATHIC PULMONARY FIBROSIS
     Dosage: ?          OTHER ROUTE:TABLETS?
     Dates: start: 20200522
  2. LORATADINE. [Suspect]
     Active Substance: LORATADINE
  3. FERROUS SULF [Suspect]
     Active Substance: FERROUS SULFATE
  4. METFORMIN [Suspect]
     Active Substance: METFORMIN HYDROCHLORIDE
  5. ASPIRIN. [Suspect]
     Active Substance: ASPIRIN
  6. NORVASC [Suspect]
     Active Substance: AMLODIPINE BESYLATE
  7. PRILOSEC OTC [Concomitant]
     Active Substance: OMEPRAZOLE MAGNESIUM
  8. VALGANCICLOV [Concomitant]
  9. FLOMAX [Suspect]
     Active Substance: TAMSULOSIN HYDROCHLORIDE

REACTIONS (2)
  - Medical procedure [None]
  - Hospitalisation [None]

NARRATIVE: CASE EVENT DATE: 20210126
